FAERS Safety Report 17948358 (Version 1)
Quarter: 2020Q2

REPORT INFORMATION
  Report Type: Spontaneous
  Country: CA (occurrence: CA)
  Receive Date: 20200625
  Receipt Date: 20200625
  Transmission Date: 20200714
  Serious: Yes (Hospitalization, Other)
  Sender: FDA-Public Use
  Company Number: CA-HRARD-202000495

PATIENT
  Age: 37 Year
  Sex: Female

DRUGS (2)
  1. LYSODREN [Suspect]
     Active Substance: MITOTANE
     Indication: ADRENAL GLAND CANCER
     Dosage: 1 G IN THE MORNING, 1 G AT LUNCH,  2 G AT SUPPER AND 2 G AT BEDTIME
     Dates: end: 20200608
  2. LYSODREN [Suspect]
     Active Substance: MITOTANE
     Indication: ADRENAL GLAND CANCER

REACTIONS (4)
  - Hypoglycaemia [Unknown]
  - Renal failure [Unknown]
  - Urinary tract infection [Unknown]
  - Hepatomegaly [Unknown]

NARRATIVE: CASE EVENT DATE: 20200608
